FAERS Safety Report 24296631 (Version 1)
Quarter: 2024Q3

REPORT INFORMATION
  Report Type: Spontaneous
  Country: CA (occurrence: CA)
  Receive Date: 20240909
  Receipt Date: 20240909
  Transmission Date: 20241016
  Serious: Yes (Disabling, Other)
  Sender: AUROBINDO
  Company Number: CA-AUROBINDO-AUR-APL-2024-044070

PATIENT
  Age: 51 Year
  Sex: Female
  Weight: 77.098 kg

DRUGS (12)
  1. TOPIRAMATE [Suspect]
     Active Substance: TOPIRAMATE
     Indication: Pain
     Dosage: 4 DOSAGE FORM, ONCE A DAY
     Route: 048
  2. AMITRIPTYLINE [Concomitant]
     Active Substance: AMITRIPTYLINE
     Indication: Product used for unknown indication
     Dosage: UNK
     Route: 065
  3. ATORVASTATIN [Concomitant]
     Active Substance: ATORVASTATIN
     Indication: Product used for unknown indication
     Dosage: UNK
     Route: 065
  4. DEXEDRINE [Concomitant]
     Active Substance: DEXTROAMPHETAMINE SULFATE
     Indication: Product used for unknown indication
     Dosage: UNK
     Route: 065
  5. LEVOTHYROXINE [Concomitant]
     Active Substance: LEVOTHYROXINE\LEVOTHYROXINE SODIUM
     Indication: Product used for unknown indication
  6. FERROUS FUMARATE [Concomitant]
     Active Substance: FERROUS FUMARATE
     Indication: Product used for unknown indication
     Dosage: UNK
     Route: 065
  7. FOLIC ACID [Concomitant]
     Active Substance: FOLIC ACID
     Indication: Product used for unknown indication
     Dosage: UNK
     Route: 065
  8. METHOTREXATE [Concomitant]
     Active Substance: METHOTREXATE
     Indication: Product used for unknown indication
     Dosage: UNK
     Route: 013
  9. PAXIL [Concomitant]
     Active Substance: PAROXETINE HYDROCHLORIDE
     Indication: Product used for unknown indication
     Dosage: UNK
     Route: 065
  10. RAMIPRIL [Concomitant]
     Active Substance: RAMIPRIL
     Indication: Product used for unknown indication
     Dosage: UNK
     Route: 065
  11. SUBOXONE [Concomitant]
     Active Substance: BUPRENORPHINE HYDROCHLORIDE\NALOXONE HYDROCHLORIDE
     Indication: Product used for unknown indication
     Dosage: UNK
     Route: 065
  12. PLAQUENIL [Concomitant]
     Active Substance: HYDROXYCHLOROQUINE SULFATE
     Indication: Product used for unknown indication
     Dosage: UNK
     Route: 065

REACTIONS (14)
  - Dropped head syndrome [Recovering/Resolving]
  - Emotional distress [Recovering/Resolving]
  - Gait disturbance [Recovering/Resolving]
  - Hypokinesia [Recovering/Resolving]
  - Impaired quality of life [Recovering/Resolving]
  - Impaired work ability [Recovering/Resolving]
  - Incontinence [Recovering/Resolving]
  - Insomnia [Recovering/Resolving]
  - Loss of personal independence in daily activities [Recovering/Resolving]
  - Muscular weakness [Recovering/Resolving]
  - Musculoskeletal stiffness [Recovering/Resolving]
  - Pain [Recovering/Resolving]
  - Social anxiety disorder [Recovering/Resolving]
  - Suicidal ideation [Recovering/Resolving]
